FAERS Safety Report 7302105-4 (Version None)
Quarter: 2011Q1

REPORT INFORMATION
  Report Type: 
  Country: None (occurrence: None)
  Receive Date: 20110218
  Receipt Date: 20110210
  Transmission Date: 20110831
  Serious: Yes (Hospitalization)
  Sender: FDA-Public Use
  Company Number: AU-NAPPMUNDI-DEU-2010-0006719

PATIENT
  Sex: Male

DRUGS (20)
  1. ASPIRIN [Concomitant]
  2. NOVORAPID [Concomitant]
  3. HYDROMORPHONE HCL [Suspect]
     Indication: CONSTIPATION
     Dosage: 20 MG, DAILY
     Route: 048
     Dates: start: 20101111, end: 20101111
  4. HYDROMORPHONE HCL [Suspect]
     Dosage: 16 MG, DAILY
     Route: 048
     Dates: start: 20101105, end: 20101110
  5. HYDROMORPHONE HCL [Suspect]
     Dosage: 8 MG, DAILY
     Route: 048
     Dates: start: 20101029, end: 20101103
  6. HYDROMORPHONE HCL [Suspect]
     Dosage: 4 MG, DAILY
     Route: 048
     Dates: start: 20101028, end: 20101028
  7. HIDROXOCOBALAMINA [Concomitant]
  8. ALBUTEROL [Concomitant]
  9. PRAVASTATIN [Concomitant]
  10. FISH OIL [Concomitant]
  11. GLYCEROLTRINITRAT [Concomitant]
  12. HYDROMORPHONE HCL [Suspect]
     Dosage: 12 MG, DAILY
     Route: 048
     Dates: start: 20101104, end: 20101104
  13. OMEPRAZOLE [Concomitant]
  14. PROBENECID [Concomitant]
  15. LANTUS [Concomitant]
  16. CARVEDILOL [Concomitant]
  17. CITALOPRAM [Concomitant]
  18. HYDROMORPHONE HCL [Suspect]
     Indication: PAIN
     Dosage: 24 MG, DAILY
     Route: 048
     Dates: start: 20101112
  19. LISINOPRIL [Concomitant]
  20. GLUCOSAMINE HYDROCHLORIDE [Concomitant]

REACTIONS (3)
  - FLUID OVERLOAD [None]
  - ANGINA UNSTABLE [None]
  - RENAL IMPAIRMENT [None]
